FAERS Safety Report 5080594-6 (Version None)
Quarter: 2006Q3

REPORT INFORMATION
  Report Type: 
  Country: None (occurrence: None)
  Receive Date: 20060815
  Receipt Date: 20060511
  Transmission Date: 20061208
  Serious: Yes (Hospitalization)
  Sender: FDA-Public Use
  Company Number: JP-JPN-A200601524

PATIENT
  Age: 34 Year
  Sex: Female
  Weight: 42 kg

DRUGS (2)
  1. VALTREX [Suspect]
     Indication: ANTIVIRAL PROPHYLAXIS
     Dosage: 500MG PER DAY
     Route: 048
     Dates: start: 20021105, end: 20060413
  2. RIZABEN [Suspect]
     Route: 048
     Dates: end: 20060413

REACTIONS (4)
  - ABORTION MISSED [None]
  - DRUG EXPOSURE DURING PREGNANCY [None]
  - GENITAL HAEMORRHAGE [None]
  - INTRA-UTERINE DEATH [None]
